FAERS Safety Report 18047614 (Version 1)
Quarter: 2020Q3

REPORT INFORMATION
  Report Type: Report from Study
  Country: JP (occurrence: JP)
  Receive Date: 20200721
  Receipt Date: 20200721
  Transmission Date: 20201103
  Serious: Yes (Death, Other)
  Sender: FDA-Public Use
  Company Number: JP-009507513-2007JPN001565J

PATIENT
  Age: 58 Year
  Sex: Male
  Weight: 65 kg

DRUGS (12)
  1. METHOTREXATE. [Concomitant]
     Active Substance: METHOTREXATE
     Indication: PROPHYLAXIS
     Dosage: 0.22 INTERNATIONAL UNIT
     Route: 051
     Dates: start: 20181101, end: 20181106
  2. ACICLOVIR [Concomitant]
     Active Substance: ACYCLOVIR
     Indication: PROPHYLAXIS
     Dosage: 1 INTERNATIONAL UNIT
     Route: 051
     Dates: start: 20181108, end: 20181128
  3. ACICLOVIR [Concomitant]
     Active Substance: ACYCLOVIR
     Indication: PROPHYLAXIS
     Dosage: 1 INTERNATIONAL UNIT
     Route: 048
     Dates: start: 20181129, end: 20181212
  4. VALACICLOVIR ACTAVIS [Concomitant]
     Active Substance: VALACYCLOVIR HYDROCHLORIDE
     Indication: PROPHYLAXIS
     Dosage: 2 DOSAGE FORM
     Route: 048
     Dates: start: 20181031, end: 20181114
  5. LETERMOVIR [Suspect]
     Active Substance: LETERMOVIR
     Indication: ANTIVIRAL PROPHYLAXIS
     Dosage: 480 MILLIGRAM, QD
     Route: 048
     Dates: start: 20181031, end: 20181109
  6. PREVYMIS [Suspect]
     Active Substance: LETERMOVIR
     Indication: ANTIVIRAL PROPHYLAXIS
     Dosage: 480 MILLIGRAM, QD
     Route: 041
     Dates: start: 20181110, end: 20181205
  7. LANSOPRAZOLE OD [Concomitant]
     Active Substance: LANSOPRAZOLE
     Indication: PROPHYLAXIS
     Dosage: 1 DOSAGE FORM
     Route: 048
     Dates: start: 20181031, end: 20181222
  8. OMEPRAZOLE. [Concomitant]
     Active Substance: OMEPRAZOLE
     Indication: PROPHYLAXIS
     Dosage: 2 INTERNATIONAL UNIT
     Route: 051
     Dates: start: 20181108, end: 20181128
  9. SOLU?CORTEF [Concomitant]
     Active Substance: HYDROCORTISONE SODIUM SUCCINATE
     Indication: PROPHYLAXIS
     Dosage: 1 INTERNATIONAL UNIT
     Route: 051
     Dates: start: 20181031, end: 20181031
  10. PROGRAF [Concomitant]
     Active Substance: TACROLIMUS
     Indication: PROPHYLAXIS
     Dosage: 1.5 DOSAGE FORM
     Route: 048
     Dates: start: 20181208, end: 20181222
  11. PROGRAF [Concomitant]
     Active Substance: TACROLIMUS
     Indication: PROPHYLAXIS
     Dosage: 0.3 INTERNATIONAL UNIT
     Route: 051
     Dates: start: 20181031, end: 20181207
  12. LETERMOVIR [Suspect]
     Active Substance: LETERMOVIR
     Dosage: 480 MILLIGRAM, QD
     Route: 048
     Dates: start: 20181206, end: 20181222

REACTIONS (3)
  - Adverse event [Unknown]
  - Bacterial infection [Fatal]
  - Post transplant lymphoproliferative disorder [Fatal]

NARRATIVE: CASE EVENT DATE: 2018
